FAERS Safety Report 9536649 (Version 1)
Quarter: 2013Q2

REPORT INFORMATION
  Report Type: Spontaneous
  Country: US (occurrence: None)
  Receive Date: 20130517
  Receipt Date: 20130517
  Transmission Date: 20140414
  Serious: No
  Sender: FDA-Public Use
  Company Number: 1000044524

PATIENT
  Age: 17 Year
  Sex: Female

DRUGS (1)
  1. VIIBRYD (VILAZODONE HYDROCHLORIDE) (TABLETS) [Suspect]
     Indication: DEPRESSION
     Dosage: 5 MG, (5 MG, 1 IN1 D0, ORAL
     Route: 048

REACTIONS (5)
  - Hallucination, visual [None]
  - Hallucination, auditory [None]
  - Paranoia [None]
  - Agitation [None]
  - Off label use [None]
